FAERS Safety Report 8255157 (Version 2)
Quarter: 2014Q3

REPORT INFORMATION
  Report Type: Spontaneous
  Country: US (occurrence: US)
  Receive Date: 20111118
  Receipt Date: 20140710
  Transmission Date: 20150326
  Serious: Yes (Hospitalization)
  Sender: FDA-Public Use
  Company Number: US-GLAXOSMITHKLINE-A0906273A

PATIENT
  Sex: Male

DRUGS (2)
  1. AVANDARYL [Suspect]
     Active Substance: GLIMEPIRIDE\ROSIGLITAZONE MALEATE
     Indication: DIABETES MELLITUS
     Route: 048
  2. AVANDIA [Suspect]
     Active Substance: ROSIGLITAZONE MALEATE
     Indication: DIABETES MELLITUS
     Route: 048

REACTIONS (9)
  - Cardiac failure congestive [Unknown]
  - Cerebrovascular disorder [Unknown]
  - Pulmonary oedema [Unknown]
  - Congestive cardiomyopathy [Unknown]
  - Cerebral artery occlusion [Unknown]
  - Atrial fibrillation [Unknown]
  - Pericardial effusion [Unknown]
  - Atrial flutter [Unknown]
  - Cerebrovascular accident [Unknown]
